FAERS Safety Report 5761330-4 (Version None)
Quarter: 2008Q2

REPORT INFORMATION
  Report Type: 
  Country: None (occurrence: None)
  Receive Date: 20080606
  Receipt Date: 20080526
  Transmission Date: 20081010
  Serious: Yes (Hospitalization)
  Sender: FDA-Public Use
  Company Number: HK-ROCHE-537965

PATIENT
  Age: 50 Year
  Sex: Female

DRUGS (4)
  1. RIBAVIRIN [Suspect]
     Dosage: FREQUENCY REPORTED AS DAILY
     Route: 048
     Dates: start: 20071113, end: 20071219
  2. PEGASYS [Concomitant]
     Route: 058
     Dates: start: 20071113
  3. FOLIC ACID [Concomitant]
     Indication: THALASSAEMIA
     Route: 048
  4. CALCIUM [Concomitant]
     Route: 048

REACTIONS (1)
  - THALASSAEMIA [None]
